FAERS Safety Report 20133907 (Version 2)
Quarter: 2021Q4

REPORT INFORMATION
  Report Type: Report from Study
  Country: US (occurrence: US)
  Receive Date: 20211201
  Receipt Date: 20211229
  Transmission Date: 20220303
  Serious: No
  Sender: FDA-Public Use
  Company Number: US-NOVARTISTESTPH-NVSC2021US269033

PATIENT
  Age: 50 Year
  Sex: Male

DRUGS (4)
  1. ENTRESTO [Suspect]
     Active Substance: SACUBITRIL\VALSARTAN
     Indication: Product used for unknown indication
     Dosage: 100 MG, BID
     Route: 048
     Dates: start: 20210109
  2. ENTRESTO [Suspect]
     Active Substance: SACUBITRIL\VALSARTAN
     Dosage: (49/51MG), BID
     Route: 048
     Dates: start: 20210209
  3. CARVEDILOL [Suspect]
     Active Substance: CARVEDILOL
     Indication: Product used for unknown indication
     Dosage: UNK UNK, BID
     Route: 048
     Dates: start: 2010, end: 2018
  4. CARVEDILOL [Suspect]
     Active Substance: CARVEDILOL
     Dosage: 50 MG
     Route: 065
     Dates: start: 20210108

REACTIONS (7)
  - Bundle branch block left [Recovering/Resolving]
  - Heart rate increased [Unknown]
  - Weight increased [Recovering/Resolving]
  - Fatigue [Unknown]
  - Cardiac disorder [Unknown]
  - Glycosylated haemoglobin increased [Unknown]
  - Product dose omission issue [Unknown]

NARRATIVE: CASE EVENT DATE: 20210101
